FAERS Safety Report 5847585-6 (Version None)
Quarter: 2008Q3

REPORT INFORMATION
  Report Type: 
  Country: None (occurrence: None)
  Receive Date: 20080818
  Receipt Date: 20080805
  Transmission Date: 20090109
  Serious: Yes (Hospitalization, Other)
  Sender: FDA-Public Use
  Company Number: GB-RANBAXY-2008RR-16971

PATIENT

DRUGS (3)
  1. CODEINE SUL TAB [Suspect]
     Dosage: 60 MG, QID
     Route: 048
     Dates: start: 20080710, end: 20080710
  2. FLUOXETINE [Concomitant]
     Indication: DEPRESSION
     Dosage: 1 DF, QD
     Route: 048
  3. PIZOTIFEN [Concomitant]
     Indication: MIGRAINE
     Dosage: 1.5 MG, QD

REACTIONS (2)
  - MALAISE [None]
  - PARAESTHESIA [None]
